FAERS Safety Report 19943868 (Version 5)
Quarter: 2022Q3

REPORT INFORMATION
  Report Type: Report from Study
  Country: US (occurrence: US)
  Receive Date: 20211012
  Receipt Date: 20220913
  Transmission Date: 20221026
  Serious: No
  Sender: FDA-Public Use
  Company Number: NVSC2021US228041

PATIENT
  Age: 58 Year
  Sex: Male

DRUGS (1)
  1. ENTRESTO [Suspect]
     Active Substance: SACUBITRIL\VALSARTAN
     Indication: Product used for unknown indication
     Dosage: 1 DOSAGE FORM, BID
     Route: 065
     Dates: start: 20210901

REACTIONS (6)
  - Blood pressure increased [Recovering/Resolving]
  - COVID-19 [Recovering/Resolving]
  - Dyspnoea [Recovered/Resolved]
  - Swelling [Recovered/Resolved]
  - Decreased activity [Recovering/Resolving]
  - Ligament rupture [Unknown]

NARRATIVE: CASE EVENT DATE: 20210901
